FAERS Safety Report 6367683-0 (Version None)
Quarter: 2009Q3

REPORT INFORMATION
  Report Type: 
  Country: None (occurrence: None)
  Receive Date: 20090921
  Receipt Date: 20090910
  Transmission Date: 20100115
  Serious: Yes (Other)
  Sender: FDA-Public Use
  Company Number: US-AVENTIS-200917419US

PATIENT
  Sex: Female
  Weight: 63.18 kg

DRUGS (4)
  1. LANTUS [Suspect]
     Route: 058
     Dates: start: 20060801
  2. HUMALOG [Suspect]
     Dates: start: 20060801
  3. IBUPROFEN [Concomitant]
     Dosage: DOSE: UNK
  4. SIMVASTATIN [Concomitant]
     Dosage: DOSE: 1 DAILY

REACTIONS (7)
  - CATARACT [None]
  - GLAUCOMA [None]
  - MACULAR DEGENERATION [None]
  - VISION BLURRED [None]
  - VISUAL ACUITY REDUCED [None]
  - VISUAL FIELD DEFECT [None]
  - VISUAL IMPAIRMENT [None]
